FAERS Safety Report 5067238-4 (Version None)
Quarter: 2006Q3

REPORT INFORMATION
  Report Type: 
  Country: None (occurrence: None)
  Receive Date: 20060727
  Receipt Date: 20060714
  Transmission Date: 20061208
  Serious: Yes (Other)
  Sender: FDA-Public Use
  Company Number: 2006089415

PATIENT
  Age: 34 Year
  Sex: Female

DRUGS (2)
  1. CELEBREX [Suspect]
     Indication: DRUG USE FOR UNKNOWN INDICATION
     Dosage: 200 MG (1 IN 1 D), ORAL
     Route: 048
     Dates: start: 20060703
  2. ESCITALOPRAM OXALATE [Concomitant]

REACTIONS (1)
  - BLOOD GLUCOSE ABNORMAL [None]
